FAERS Safety Report 19191534 (Version 2)
Quarter: 2021Q2

REPORT INFORMATION
  Report Type: Spontaneous
  Country: GB (occurrence: GB)
  Receive Date: 20210429
  Receipt Date: 20210510
  Transmission Date: 20210717
  Serious: Yes (Other)
  Sender: FDA-Public Use
  Company Number: GB-AUROBINDO-AUR-APL-2021-017052

PATIENT
  Sex: Female

DRUGS (2)
  1. LOSARTAN FILM?COATED TABLETS [Suspect]
     Active Substance: LOSARTAN
     Dosage: 50 MILLIGRAM, ONCE A DAY (IN THE MORNING)
     Route: 065
  2. LOSARTAN FILM?COATED TABLETS [Suspect]
     Active Substance: LOSARTAN
     Indication: PRODUCT USED FOR UNKNOWN INDICATION
     Dosage: 100 MILLIGRAM, ONCE A DAY (IN MORNING)
     Route: 065

REACTIONS (5)
  - Arrhythmia [Unknown]
  - Product administration error [Unknown]
  - Malaise [Unknown]
  - Headache [Unknown]
  - Fatigue [Unknown]
